FAERS Safety Report 5241970-1 (Version None)
Quarter: 2007Q1

REPORT INFORMATION
  Report Type: 
  Country: None (occurrence: None)
  Receive Date: 20070220
  Receipt Date: 20070208
  Transmission Date: 20070707
  Serious: Yes (Other)
  Sender: FDA-Public Use
  Company Number: FR-PFIZER INC-2007011219

PATIENT
  Age: 39 Year
  Sex: Female

DRUGS (2)
  1. SULFASALAZINE [Suspect]
     Indication: ANKYLOSING SPONDYLITIS
  2. TRAMADOL HCL [Concomitant]
     Indication: PAIN

REACTIONS (5)
  - ANOREXIA [None]
  - ERYTHEMA [None]
  - FATIGUE [None]
  - HEADACHE [None]
  - WEIGHT DECREASED [None]
